FAERS Safety Report 25906091 (Version 3)
Quarter: 2025Q4

REPORT INFORMATION
  Report Type: Spontaneous
  Country: US (occurrence: US)
  Receive Date: 20251010
  Receipt Date: 20251030
  Transmission Date: 20260118
  Serious: Yes (Other)
  Sender: TEVA
  Company Number: US-TEVA-VS-3380619

PATIENT
  Age: 72 Year
  Sex: Male
  Weight: 90.718 kg

DRUGS (4)
  1. VALSARTAN [Suspect]
     Active Substance: VALSARTAN
     Indication: Product used for unknown indication
     Route: 065
     Dates: start: 20170113, end: 20171121
  2. VALSARTAN [Suspect]
     Active Substance: VALSARTAN
     Indication: Product used for unknown indication
     Route: 065
     Dates: start: 20180111, end: 20180326
  3. SERRAPEPTASE [Concomitant]
     Active Substance: SERRAPEPTASE
     Indication: Lung disorder
     Dosage: 40000 SPV 1 DAILY
     Route: 065
     Dates: start: 20170101
  4. IRBESARTAN [Suspect]
     Active Substance: IRBESARTAN
     Indication: Product used for unknown indication
     Route: 065
     Dates: start: 20180719, end: 20191217

REACTIONS (1)
  - Diffuse large B-cell lymphoma [Unknown]

NARRATIVE: CASE EVENT DATE: 20200705
